FAERS Safety Report 5211180-2 (Version None)
Quarter: 2006Q4

REPORT INFORMATION
  Report Type: 
  Country: None (occurrence: None)
  Receive Date: 20061130
  Receipt Date: 20060803
  Transmission Date: 20070319
  Serious: Yes (Other)
  Sender: FDA-Public Use
  Company Number: WAES 0608USA01080

PATIENT
  Age: 67 Year
  Sex: Female
  Weight: 68.0396 kg

DRUGS (16)
  1. FOSAMAX [Suspect]
     Indication: OSTEOPENIA
     Dosage: 70 MG WKY PO
     Route: 048
     Dates: start: 20030101, end: 20060802
  2. FOSAMAX [Suspect]
     Indication: OSTEOPOROSIS
     Dosage: 70 MG WKY PO
     Route: 048
     Dates: start: 20030101, end: 20060802
  3. DIOVAN [Concomitant]
  4. OGEN [Concomitant]
  5. SYNTHROID [Concomitant]
  6. TYLENOL [Concomitant]
  7. VALIUM [Concomitant]
  8. VESICARE [Concomitant]
  9. WELLBUTRIN XL [Concomitant]
  10. ASCORBIC ACID [Concomitant]
  11. ASPIRIN [Concomitant]
  12. CALCIUM (UNSPECIFIED) [Concomitant]
  13. PREDNISONE [Concomitant]
  14. VITAMIN A [Concomitant]
  15. VITAMIN E [Concomitant]
  16. MULTI-VITAMINS [Concomitant]

REACTIONS (4)
  - DIARRHOEA [None]
  - IMPAIRED HEALING [None]
  - OSTEONECROSIS [None]
  - RENAL IMPAIRMENT [None]
